APPROVED DRUG PRODUCT: MIRTAZAPINE
Active Ingredient: MIRTAZAPINE
Strength: 30MG
Dosage Form/Route: TABLET, ORALLY DISINTEGRATING;ORAL
Application: A205798 | Product #002 | TE Code: AB
Applicant: SQUARE PHARMACEUTICALS PLC
Approved: Jun 1, 2017 | RLD: No | RS: No | Type: RX